FAERS Safety Report 4723999-2 (Version None)
Quarter: 2005Q3

REPORT INFORMATION
  Report Type: 
  Country: None (occurrence: None)
  Receive Date: 20050721
  Receipt Date: 20050713
  Transmission Date: 20060218
  Serious: Yes (Hospitalization)
  Sender: FDA-Public Use
  Company Number: OMPQ-PR-0507S-1079

PATIENT
  Age: 57 Year
  Sex: Male

DRUGS (1)
  1. OMNIPAQUE 300 [Suspect]
     Indication: ROTATOR CUFF SYNDROME
     Dosage: 12 ML, SINGLE DOSE, INTRA-ARTICULAR
     Route: 014
     Dates: start: 20050623, end: 20050623

REACTIONS (3)
  - ALPHA HAEMOLYTIC STREPTOCOCCAL INFECTION [None]
  - ARTHRITIS BACTERIAL [None]
  - POST PROCEDURAL COMPLICATION [None]
